FAERS Safety Report 6685092-1 (Version None)
Quarter: 2010Q2

REPORT INFORMATION
  Report Type: 
  Country: None (occurrence: None)
  Receive Date: 20100416
  Receipt Date: 20100410
  Transmission Date: 20101027
  Serious: Yes (Other)
  Sender: FDA-Public Use
  Company Number: B0647189A

PATIENT
  Age: 57 Year
  Sex: Female

DRUGS (1)
  1. FLIXONASE [Suspect]
     Dosage: 2PUFF PER DAY
     Route: 045

REACTIONS (8)
  - DRY EYE [None]
  - EYE DISORDER [None]
  - EYE MOVEMENT DISORDER [None]
  - PAIN [None]
  - PHARYNGEAL DISORDER [None]
  - TONSILLAR ULCER [None]
  - VISION BLURRED [None]
  - VISUAL ACUITY REDUCED [None]
